FAERS Safety Report 14033234 (Version 1)
Quarter: 2017Q4

REPORT INFORMATION
  Report Type: Spontaneous
  Country: US (occurrence: US)
  Receive Date: 20171002
  Receipt Date: 20171002
  Transmission Date: 20180321
  Serious: Yes (Other)
  Sender: FDA-Public Use
  Company Number: None

PATIENT
  Age: 53 Year
  Sex: Female
  Weight: 49.05 kg

DRUGS (1)
  1. PROLIA [Suspect]
     Active Substance: DENOSUMAB
     Indication: ADJUVANT THERAPY
     Dosage: 60 MG/ML Q6 MONTHS SUBCUTANEOUS?
     Route: 058
     Dates: start: 20161013, end: 20170413

REACTIONS (1)
  - Jaw disorder [None]

NARRATIVE: CASE EVENT DATE: 20170929
